FAERS Safety Report 22312108 (Version 1)
Quarter: 2023Q2

REPORT INFORMATION
  Report Type: Spontaneous
  Country: IT (occurrence: IT)
  Receive Date: 20230512
  Receipt Date: 20230512
  Transmission Date: 20230721
  Serious: Yes (Other)
  Sender: FDA-Public Use
  Company Number: IT-CELLTRION INC.-2023IT006303

PATIENT

DRUGS (10)
  1. RITUXIMAB [Suspect]
     Active Substance: RITUXIMAB
     Indication: Diffuse large B-cell lymphoma stage IV
     Dosage: 375 MG/M2 ON DAY 1, 6 AND 21 DAY/ 375 MILLIGRAM/SQ. METER, Q21D (R-CHOP-21 + 2R THERAPY; ON DAY 1 AD
     Route: 042
  2. DOXORUBICIN [Suspect]
     Active Substance: DOXORUBICIN
     Indication: Diffuse large B-cell lymphoma stage IV
     Dosage: 50 MILLIGRAM/SQ. METER, Q21D (R-CHOP-21 + 2R THERAPY; ON DAY 1 ADMINISTERED EVERY 21 DAYS)
     Route: 042
  3. CYCLOPHOSPHAMIDE [Suspect]
     Active Substance: CYCLOPHOSPHAMIDE
     Indication: Diffuse large B-cell lymphoma stage IV
     Dosage: 750 MILLIGRAM/SQ. METER, Q21D (R-CHOP-21 + 2R THERAPY; ON DAY 1 ADMINISTERED EVERY 21 DAYS)
     Route: 042
  4. PREDNISONE [Suspect]
     Active Substance: PREDNISONE
     Indication: Diffuse large B-cell lymphoma stage IV
     Dosage: 100 MG (ON DAY 1-5, AND ON DAY 21)/100 MILLIGRAM, Q21D (R-CHOP-21 + 2R THERAPY; ON DAYS 1-5 ADMINIST
     Route: 048
  5. LAMIVUDINE [Suspect]
     Active Substance: LAMIVUDINE
     Indication: Antiviral prophylaxis
     Dosage: 100 MG, QD (STARTING 1 WEEK BEFORE R-CHOP-21+2R SCHEME, SCHEDULED UNTIL 6 MONTHS)
     Route: 048
  6. LAMIVUDINE [Suspect]
     Active Substance: LAMIVUDINE
     Indication: Prophylaxis
  7. VINCRISTINE [Suspect]
     Active Substance: VINCRISTINE
     Indication: Diffuse large B-cell lymphoma stage IV
     Dosage: 1.4 MG/M2, MAXIMUM DOSE 2 MG)/ 1.4 MILLIGRAM/SQ. METER, Q21D (R-CHOP-21 + 2R THERAPY; ON DAY 1 ADMIN
     Route: 042
  8. GRANULOCYTE COLONY-STIMULATING FACTOR NOS [Concomitant]
     Active Substance: GRANULOCYTE COLONY-STIMULATING FACTOR NOS
     Indication: Antibiotic prophylaxis
     Dosage: UNK
  9. SULFAMETHOXAZOLE\TRIMETHOPRIM [Concomitant]
     Active Substance: SULFAMETHOXAZOLE\TRIMETHOPRIM
     Indication: Antibiotic prophylaxis
     Dosage: UNK
  10. ACYCLOVIR [Concomitant]
     Active Substance: ACYCLOVIR
     Indication: Antiviral prophylaxis

REACTIONS (2)
  - Hepatitis B reactivation [Recovered/Resolved]
  - Drug ineffective [Unknown]
